FAERS Safety Report 15266822 (Version 2)
Quarter: 2018Q3

REPORT INFORMATION
  Report Type: Spontaneous
  Country: GB (occurrence: GB)
  Receive Date: 20180810
  Receipt Date: 20180928
  Transmission Date: 20181010
  Serious: Yes (Hospitalization)
  Sender: FDA-Public Use
  Company Number: GB-ANIPHARMA-2018-UK-000092

PATIENT
  Age: 68 Year
  Sex: Male
  Weight: 110 kg

DRUGS (13)
  1. NEBIVOLOL. [Concomitant]
     Active Substance: NEBIVOLOL
     Route: 065
  2. PLACEBO [Suspect]
     Active Substance: UNSPECIFIED INGREDIENT
     Route: 065
     Dates: start: 20180111, end: 20180111
  3. ALLOPURINOL. [Concomitant]
     Active Substance: ALLOPURINOL
     Route: 065
  4. DOXAZOSIN MEILATE [Concomitant]
     Route: 065
  5. CANDESARTAN CILEXETIL. [Suspect]
     Active Substance: CANDESARTAN CILEXETIL
     Indication: HYPERTENSION
     Route: 048
  6. ATORVASTATIN [Concomitant]
     Active Substance: ATORVASTATIN
     Route: 065
  7. EXENATIDE. [Concomitant]
     Active Substance: EXENATIDE
     Route: 065
  8. LANTUS [Concomitant]
     Active Substance: INSULIN GLARGINE
     Route: 065
  9. TICAGRELOR. [Suspect]
     Active Substance: TICAGRELOR
     Dosage: 90MG DAILY
     Route: 048
     Dates: start: 20180530, end: 20180817
  10. ASPIRIN. [Suspect]
     Active Substance: ASPIRIN
     Dosage: 75MG DAILY
     Route: 048
     Dates: start: 20180530
  11. AMLOIDIPINE [Concomitant]
     Route: 065
  12. OMEPRAZOLE. [Suspect]
     Active Substance: OMEPRAZOLE
     Route: 048
  13. METFORMIN [Concomitant]
     Active Substance: METFORMIN HYDROCHLORIDE
     Route: 065

REACTIONS (3)
  - Rectal haemorrhage [Unknown]
  - Diverticulum [Recovered/Resolved]
  - Helicobacter infection [Recovered/Resolved]

NARRATIVE: CASE EVENT DATE: 20180528
